FAERS Safety Report 13455842 (Version 7)
Quarter: 2018Q2

REPORT INFORMATION
  Report Type: Report from Study
  Country: BR (occurrence: BR)
  Receive Date: 20170419
  Receipt Date: 20180612
  Transmission Date: 20180711
  Serious: Yes (Hospitalization, Other)
  Sender: FDA-Public Use
  Company Number: BR-GLAXOSMITHKLINE-BR2015GSK058272

PATIENT
  Sex: Female
  Weight: 64 kg

DRUGS (5)
  1. POLARAMINE [Concomitant]
     Active Substance: DEXCHLORPHENIRAMINE MALEATE
     Indication: SOMNOLENCE
     Dosage: UNK
  2. AZITHROMYCIN ANHYDROUS. [Concomitant]
     Active Substance: AZITHROMYCIN ANHYDROUS
     Indication: DECREASED IMMUNE RESPONSIVENESS
     Dosage: UNK
  3. REUQUINOL (HYDROXYCHLOROQUINE SULFATE) [Concomitant]
     Indication: PRODUCT USED FOR UNKNOWN INDICATION
     Dosage: 400 MG, BID
  4. BELIMUMAB [Suspect]
     Active Substance: BELIMUMAB
     Indication: SYSTEMIC LUPUS ERYTHEMATOSUS
     Dosage: 600 MG, UNK
     Dates: start: 20141121
  5. PREDNISONE. [Concomitant]
     Active Substance: PREDNISONE
     Indication: PRODUCT USED FOR UNKNOWN INDICATION
     Dosage: 5 MG, BID

REACTIONS (30)
  - Influenza [Unknown]
  - Weight fluctuation [Unknown]
  - Blood urine present [Unknown]
  - Urinary tract infection [Unknown]
  - Genital infection female [Unknown]
  - Enteritis infectious [Not Recovered/Not Resolved]
  - Bone pain [Not Recovered/Not Resolved]
  - Weight increased [Unknown]
  - Neoplasm [Unknown]
  - Product availability issue [Unknown]
  - Ill-defined disorder [Unknown]
  - Decreased immune responsiveness [Unknown]
  - Oral herpes [Not Recovered/Not Resolved]
  - Depression [Not Recovered/Not Resolved]
  - Nausea [Unknown]
  - Weight decreased [Unknown]
  - Headache [Unknown]
  - Somnolence [Unknown]
  - Tendon pain [Not Recovered/Not Resolved]
  - Pain [Not Recovered/Not Resolved]
  - Drug dose omission [Not Recovered/Not Resolved]
  - Circumstance or information capable of leading to medication error [Unknown]
  - Fatigue [Unknown]
  - Bladder pain [Unknown]
  - Intentional product misuse [Not Recovered/Not Resolved]
  - Paraesthesia [Not Recovered/Not Resolved]
  - Underdose [Unknown]
  - Sinusitis [Unknown]
  - Off label use [Unknown]
  - Inappropriate schedule of drug administration [Not Recovered/Not Resolved]
